FAERS Safety Report 10160538 (Version 1)
Quarter: 2014Q2

REPORT INFORMATION
  Report Type: Spontaneous
  Country: US (occurrence: None)
  Receive Date: 20140507
  Receipt Date: 20140507
  Transmission Date: 20141212
  Serious: No
  Sender: FDA-Public Use
  Company Number: None

PATIENT
  Age: 77 Year
  Sex: Male
  Weight: 83.92 kg

DRUGS (14)
  1. TYVASO [Suspect]
     Indication: PULMONARY ARTERIAL HYPERTENSION
     Route: 048
     Dates: start: 20140407, end: 20140411
  2. ENBREL [Concomitant]
  3. METHOTREXATE [Concomitant]
  4. PREDNIZONE [Concomitant]
  5. LISINOPRIL [Concomitant]
  6. ZETIA [Concomitant]
  7. FENIBRATE [Concomitant]
  8. TERAZOSIN [Concomitant]
  9. OMEPRAZOLE [Concomitant]
  10. ALENDRONATE [Concomitant]
  11. TIMOLOL [Concomitant]
  12. TAMSULOSIN [Concomitant]
  13. CELEBREX [Concomitant]
  14. PACE MAKER [Concomitant]

REACTIONS (3)
  - Pain in jaw [None]
  - Gynaecomastia [None]
  - Breast tenderness [None]
